FAERS Safety Report 8137050-8 (Version None)
Quarter: 2012Q1

REPORT INFORMATION
  Report Type: 
  Country: None (occurrence: None)
  Receive Date: 20120215
  Receipt Date: 20120206
  Transmission Date: 20120608
  Serious: No
  Sender: FDA-Public Use
  Company Number: US-BIOGENIDEC-2012BI002776

PATIENT
  Age: 48 Year
  Sex: Female

DRUGS (2)
  1. TYLENOL W/ CODEINE NO. 3 [Concomitant]
     Indication: BACK PAIN
  2. TYSABRI [Suspect]
     Indication: MULTIPLE SCLEROSIS
     Route: 042
     Dates: start: 20111021

REACTIONS (5)
  - BACK PAIN [None]
  - FALL [None]
  - SPINAL FRACTURE [None]
  - NASOPHARYNGITIS [None]
  - BACK DISORDER [None]
